FAERS Safety Report 16862339 (Version 1)
Quarter: 2019Q3

REPORT INFORMATION
  Report Type: Spontaneous
  Country: US (occurrence: US)
  Receive Date: 20190927
  Receipt Date: 20190927
  Transmission Date: 20191005
  Serious: No
  Sender: FDA-Public Use
  Company Number: US-009507513-1909USA012579

PATIENT
  Sex: Female

DRUGS (1)
  1. NEXPLANON [Suspect]
     Active Substance: ETONOGESTREL
     Indication: CONTRACEPTION
     Dosage: 1 DOSAGE FORM, EVERY 3 YEAR
     Route: 059
     Dates: start: 20180102

REACTIONS (4)
  - Muscle spasms [Unknown]
  - Skin burning sensation [Unknown]
  - Skin discomfort [Unknown]
  - Vaginal haemorrhage [Unknown]
